FAERS Safety Report 21819149 (Version 1)
Quarter: 2023Q1

REPORT INFORMATION
  Report Type: Spontaneous
  Country: US (occurrence: None)
  Receive Date: 20230104
  Receipt Date: 20230104
  Transmission Date: 20230418
  Serious: Yes (Life-Threatening, Hospitalization, Disabling, Other)
  Sender: FDA-Public Use
  Company Number: None

PATIENT
  Age: 72 Year
  Sex: Female
  Weight: 49.9 kg

DRUGS (2)
  1. ESTRADIOL TRANSDERMAL SYSTEM [Suspect]
     Active Substance: ESTRADIOL
     Indication: Menopause
     Dosage: FREQUENCY : TWICE A WEEK;?
     Route: 062
     Dates: start: 200101, end: 202207
  2. VIVELLE-DOT [Suspect]
     Active Substance: ESTRADIOL

REACTIONS (4)
  - Inguinal hernia [None]
  - Endometrial cancer [None]
  - Oestrogen receptor assay positive [None]
  - Ovarian cyst [None]

NARRATIVE: CASE EVENT DATE: 20220715
